FAERS Safety Report 8301573-9 (Version None)
Quarter: 2012Q2

REPORT INFORMATION
  Report Type: 
  Country: None (occurrence: None)
  Receive Date: 20120420
  Receipt Date: 20120411
  Transmission Date: 20120825
  Serious: Yes (Hospitalization)
  Sender: FDA-Public Use
  Company Number: US-JNJFOC-20120308429

PATIENT
  Sex: Male
  Weight: 117.48 kg

DRUGS (11)
  1. REMICADE [Suspect]
     Indication: CROHN'S DISEASE
     Dosage: TOTAL OF 21 INFUSIONS
     Route: 042
     Dates: start: 20111209
  2. REMICADE [Suspect]
     Route: 042
     Dates: start: 20090206
  3. POTASSIUM CHLORIDE [Concomitant]
     Indication: HYPOKALAEMIA
  4. DILTIAZEM HCL [Concomitant]
     Indication: HYPERTENSION
     Dates: start: 20100101
  5. VITAMIN B-12 [Concomitant]
     Indication: VITAMIN B12 DEFICIENCY
     Route: 058
     Dates: start: 20100501
  6. BUDESONIDE [Concomitant]
     Indication: CROHN'S DISEASE
  7. LISINOPRIL AND HYDROCHLOROTHIAZIDE [Concomitant]
     Indication: HYPERTENSION
     Dosage: DOSE=  20/12.5 MG ONCE A DAY
  8. PENTASA [Concomitant]
     Indication: CROHN'S DISEASE
     Route: 048
  9. PRILOSEC [Concomitant]
     Indication: GASTROOESOPHAGEAL REFLUX DISEASE
  10. ENTOCORT EC [Concomitant]
     Indication: CROHN'S DISEASE
  11. REGLAN [Concomitant]
     Indication: GASTROOESOPHAGEAL REFLUX DISEASE
     Dates: start: 20100801

REACTIONS (1)
  - RENAL CELL CARCINOMA [None]
